FAERS Safety Report 6726652-9 (Version None)
Quarter: 2010Q2

REPORT INFORMATION
  Report Type: 
  Country: None (occurrence: None)
  Receive Date: 20100514
  Receipt Date: 20100505
  Transmission Date: 20101027
  Serious: Yes (Death, Hospitalization)
  Sender: FDA-Public Use
  Company Number: GB-ABBOTT-10P-167-0640810-00

PATIENT
  Age: 62 Year
  Sex: Male

DRUGS (1)
  1. HUMIRA [Suspect]
     Indication: RHEUMATOID ARTHRITIS

REACTIONS (8)
  - ASTHENIA [None]
  - CONGESTIVE CARDIOMYOPATHY [None]
  - HEPATIC FAILURE [None]
  - HEPATITIS C [None]
  - HEPATITIS E [None]
  - JAUNDICE [None]
  - LIVER DISORDER [None]
  - LIVER INJURY [None]
